FAERS Safety Report 13807760 (Version 1)
Quarter: 2017Q3

REPORT INFORMATION
  Report Type: Spontaneous
  Country: CN (occurrence: CN)
  Receive Date: 20170728
  Receipt Date: 20170728
  Transmission Date: 20171127
  Serious: Yes (Hospitalization)
  Sender: FDA-Public Use
  Company Number: CN-NOVOPROD-555526

PATIENT
  Age: 53 Year
  Sex: Female
  Weight: 64 kg

DRUGS (1)
  1. NOVOMIX 30 FLEXPEN [Suspect]
     Active Substance: INSULIN ASPART
     Indication: DIABETES MELLITUS
     Dosage: 30 U, QD (16U 14U BID)
     Route: 058
     Dates: start: 20170430, end: 20170501

REACTIONS (2)
  - Vomiting [Recovered/Resolved]
  - Syncope [Recovered/Resolved]

NARRATIVE: CASE EVENT DATE: 20170501
